FAERS Safety Report 12296463 (Version 6)
Quarter: 2017Q4

REPORT INFORMATION
  Report Type: Report from Study
  Country: KR (occurrence: KR)
  Receive Date: 20160422
  Receipt Date: 20171226
  Transmission Date: 20180320
  Serious: Yes (Hospitalization)
  Sender: FDA-Public Use
  Company Number: KR-B.I. PHARMACEUTICALS,INC./RIDGEFIELD-2016-BI-24146RK

PATIENT
  Age: 59 Year
  Sex: Female
  Weight: 54.6 kg

DRUGS (14)
  1. GILOTRIF [Suspect]
     Active Substance: AFATINIB
     Route: 048
     Dates: start: 20160428, end: 20160721
  2. DIAMICRON [Concomitant]
     Active Substance: GLICLAZIDE
     Indication: DIABETES MELLITUS
     Dosage: MR
     Route: 065
     Dates: start: 20150825, end: 20150826
  3. PRITOR [Concomitant]
     Active Substance: TELMISARTAN
     Indication: HYPERTENSION
     Dosage: MR
     Route: 065
     Dates: start: 20150930
  4. NEXIUM [Concomitant]
     Active Substance: ESOMEPRAZOLE MAGNESIUM
     Indication: PRODUCT USED FOR UNKNOWN INDICATION
     Dosage: MR
     Route: 065
     Dates: start: 20150901
  5. ANTIBIO [Concomitant]
     Indication: DIARRHOEA
     Dosage: MR
     Route: 065
     Dates: start: 20150908
  6. ULTRACET SEMI [Concomitant]
     Indication: CATHETER SITE PAIN
     Dosage: ER
     Route: 065
     Dates: start: 20150825
  7. DIAMICRON [Concomitant]
     Active Substance: GLICLAZIDE
     Dosage: MR
     Route: 065
     Dates: start: 20150831
  8. LIPITOR [Concomitant]
     Active Substance: ATORVASTATIN CALCIUM
     Indication: HYPERTENSION
     Route: 065
     Dates: start: 20150930
  9. GILOTRIF [Suspect]
     Active Substance: AFATINIB
     Route: 048
     Dates: start: 20150915, end: 20160414
  10. DIAMICRON [Concomitant]
     Active Substance: GLICLAZIDE
     Dosage: MR
     Route: 065
     Dates: start: 20150829, end: 20150830
  11. GALVUS [Concomitant]
     Active Substance: VILDAGLIPTIN
     Indication: DIABETES MELLITUS
     Dosage: MR
     Route: 065
     Dates: start: 20151028
  12. GLUCOPHAGE [Concomitant]
     Active Substance: METFORMIN HYDROCHLORIDE
     Indication: DIABETES MELLITUS
     Dosage: MR
     Route: 065
     Dates: start: 20151104
  13. GILOTRIF [Suspect]
     Active Substance: AFATINIB
     Indication: NON-SMALL CELL LUNG CANCER
     Route: 048
     Dates: start: 20150908, end: 20150912
  14. SYNTHROID [Concomitant]
     Active Substance: LEVOTHYROXINE SODIUM
     Indication: THYROID CANCER
     Dosage: MR
     Route: 065
     Dates: start: 20151104

REACTIONS (1)
  - Renal abscess [Recovered/Resolved]

NARRATIVE: CASE EVENT DATE: 20160405
